FAERS Safety Report 7219468-0 (Version None)
Quarter: 2011Q1

REPORT INFORMATION
  Report Type: 
  Country: None (occurrence: None)
  Receive Date: 20110111
  Receipt Date: 20101230
  Transmission Date: 20110831
  Serious: Yes (Life-Threatening, Hospitalization)
  Sender: FDA-Public Use
  Company Number: FR-TYCO HEALTHCARE/MALLINCKRODT-T201002420

PATIENT
  Sex: Male
  Weight: 100 kg

DRUGS (1)
  1. OPTIJECT [Suspect]
     Indication: ANGIOGRAM
     Dosage: 70 ML, SINGLE
     Route: 042
     Dates: start: 20101209, end: 20101209

REACTIONS (2)
  - ANAPHYLACTIC SHOCK [None]
  - CARDIAC ARREST [None]
